FAERS Safety Report 22021526 (Version 2)
Quarter: 2023Q2

REPORT INFORMATION
  Report Type: Spontaneous
  Country: US (occurrence: None)
  Receive Date: 20230222
  Receipt Date: 20230405
  Transmission Date: 20230722
  Serious: Yes (Hospitalization)
  Sender: FDA-Public Use
  Company Number: US-ROCHE-3287272

PATIENT
  Age: 74 Year
  Sex: Female
  Weight: 45.854 kg

DRUGS (6)
  1. ROZLYTREK [Suspect]
     Active Substance: ENTRECTINIB
     Indication: Lung neoplasm malignant
     Route: 048
     Dates: start: 202203
  2. ROZLYTREK [Suspect]
     Active Substance: ENTRECTINIB
     Indication: Lung carcinoma cell type unspecified stage III
  3. ATORVASTATIN [Concomitant]
     Active Substance: ATORVASTATIN
     Indication: Blood cholesterol increased
  4. TRAMADOL [Concomitant]
     Active Substance: TRAMADOL
     Indication: Pain
  5. OMEPRAZOLE [Concomitant]
     Active Substance: OMEPRAZOLE
     Indication: Dyspepsia
  6. ADVAIR HFA [Concomitant]
     Active Substance: FLUTICASONE PROPIONATE\SALMETEROL XINAFOATE
     Indication: Asthma

REACTIONS (18)
  - Oesophageal pain [Unknown]
  - Product complaint [Unknown]
  - Wrong technique in product usage process [Unknown]
  - Throat irritation [Recovered/Resolved]
  - Constipation [Recovering/Resolving]
  - Fall [Unknown]
  - Shoulder fracture [Recovering/Resolving]
  - Cerebral haemorrhage [Recovered/Resolved]
  - Cardiac disorder [Unknown]
  - Weight decreased [Not Recovered/Not Resolved]
  - Balance disorder [Recovered/Resolved]
  - Memory impairment [Unknown]
  - Product quality issue [Unknown]
  - Tremor [Not Recovered/Not Resolved]
  - Blood glucose decreased [Unknown]
  - Diarrhoea [Recovered/Resolved]
  - Pharyngeal disorder [Recovered/Resolved]
  - Burn oral cavity [Recovered/Resolved]

NARRATIVE: CASE EVENT DATE: 20220825
